FAERS Safety Report 24077231 (Version 1)
Quarter: 2024Q3

REPORT INFORMATION
  Report Type: Spontaneous
  Country: US (occurrence: US)
  Receive Date: 20240711
  Receipt Date: 20240711
  Transmission Date: 20241016
  Serious: No
  Sender: PIERRE FABRE MEDICAMENT
  Company Number: US-PFM-2023-04461

PATIENT
  Age: 0 Year
  Sex: Male

DRUGS (1)
  1. HEMANGEOL [Suspect]
     Active Substance: PROPRANOLOL HYDROCHLORIDE
     Indication: Infantile haemangioma
     Dosage: 3.4 ML, BID (2/DAY)
     Route: 048
     Dates: start: 20230628

REACTIONS (1)
  - Infantile spitting up [Unknown]

NARRATIVE: CASE EVENT DATE: 20230701
